FAERS Safety Report 11821464 (Version 2)
Quarter: 2016Q1

REPORT INFORMATION
  Report Type: Report from Study
  Country: IL (occurrence: IL)
  Receive Date: 20151210
  Receipt Date: 20160205
  Transmission Date: 20160525
  Serious: Yes (Other)
  Sender: FDA-Public Use
  Company Number: IL-ELI_LILLY_AND_COMPANY-IL201512000831

PATIENT
  Sex: Female

DRUGS (8)
  1. INSULIN, LISPRO [Suspect]
     Active Substance: INSULIN LISPRO
     Dosage: 28 U, QD
     Route: 065
     Dates: start: 20150221, end: 20150924
  2. SIMVACOR [Concomitant]
     Active Substance: SIMVASTATIN
     Dosage: UNK UNK, UNKNOWN
     Route: 065
     Dates: start: 20150221, end: 20150924
  3. INSULIN, LISPRO [Suspect]
     Active Substance: INSULIN LISPRO
     Dosage: 55 U, QD
     Route: 065
     Dates: start: 20150818, end: 20150924
  4. CIPRALEX [Concomitant]
     Active Substance: ESCITALOPRAM OXALATE
     Dosage: UNK, UNKNOWN
     Route: 065
     Dates: start: 20150221, end: 20150924
  5. MAGNESIUM [Concomitant]
     Active Substance: MAGNESIUM
     Dosage: UNK, UNKNOWN
     Route: 065
     Dates: start: 20150924, end: 20150924
  6. ALDOMIN [Concomitant]
     Dosage: UNK, UNKNOWN
     Route: 065
     Dates: start: 20150910, end: 20150924
  7. INSULIN, LISPRO [Suspect]
     Active Substance: INSULIN LISPRO
     Indication: TYPE 1 DIABETES MELLITUS
     Dosage: 24 U, QD
     Route: 065
     Dates: start: 20150221, end: 20150924
  8. ENOXAPARIN SODIUM. [Concomitant]
     Active Substance: ENOXAPARIN SODIUM
     Dosage: UNK, UNKNOWN
     Route: 065
     Dates: start: 20150924, end: 20150924

REACTIONS (3)
  - Maternal exposure during pregnancy [Recovered/Resolved]
  - Pre-eclampsia [Unknown]
  - Cerebrovascular accident [Unknown]

NARRATIVE: CASE EVENT DATE: 2015
